FAERS Safety Report 6861063-7 (Version None)
Quarter: 2010Q3

REPORT INFORMATION
  Report Type: 
  Country: None (occurrence: None)
  Receive Date: 20100720
  Receipt Date: 20100708
  Transmission Date: 20110219
  Serious: Yes (Other)
  Sender: FDA-Public Use
  Company Number: PHHO2010KR10306

PATIENT
  Sex: Male
  Weight: 62.5 kg

DRUGS (7)
  1. BLINDED ACZ885 ACZ+ [Suspect]
     Indication: DIABETES MELLITUS
     Dosage: BLINDED
     Route: 042
     Dates: start: 20100504
  2. BLINDED NO TREATMENT RECEIVED NOMED [Suspect]
     Indication: DIABETES MELLITUS
     Dosage: BLINDED
     Route: 042
     Dates: start: 20100504
  3. BLINDED PLACEBO COMP-PLA+ [Suspect]
     Indication: DIABETES MELLITUS
     Dosage: BLINDED
     Route: 042
     Dates: start: 20100504
  4. ACERDIL [Concomitant]
     Indication: HYPERTENSION
  5. ATORVASTATIN [Concomitant]
     Indication: HYPERTENSION
  6. AMLODIPINE [Concomitant]
     Indication: HYPERTENSION
  7. GLUCOPHAGE [Concomitant]
     Indication: DIABETES MELLITUS

REACTIONS (5)
  - BRAIN CONTUSION [None]
  - FALL [None]
  - SCAPULA FRACTURE [None]
  - SINUSITIS [None]
  - SPINAL FRACTURE [None]
